FAERS Safety Report 5536720-5 (Version None)
Quarter: 2007Q4

REPORT INFORMATION
  Report Type: 
  Country: None (occurrence: None)
  Receive Date: 20071204
  Receipt Date: 20071119
  Transmission Date: 20080405
  Serious: Yes (Death, Life-Threatening)
  Sender: FDA-Public Use
  Company Number: 2007JP004615

PATIENT
  Age: 69 Year
  Sex: Female
  Weight: 42.02 kg

DRUGS (10)
  1. PROGRAF [Suspect]
     Indication: RHEUMATOID ARTHRITIS
     Dosage: 2 MG, UID/QD, ORAL
     Route: 048
     Dates: start: 20070125, end: 20070830
  2. RHEUMATREX [Suspect]
     Indication: RHEUMATOID ARTHRITIS
     Dosage: 2 MG, WEEKLY, ORAL
     Route: 048
     Dates: start: 20070118, end: 20070830
  3. PREDNISOLONE [Suspect]
     Indication: RHEUMATOID ARTHRITIS
     Dosage: 5 MG, BID, ORAL
     Route: 048
     Dates: start: 20070118, end: 20070830
  4. SOL MEDROL(METHYLPREDNISOLONE, SUCCINATE SODIUM) FORMULATION UNKNOWN [Suspect]
     Dosage: 1000 MG, D, 300 MG, D, 125 MG, D
     Dates: start: 20070830, end: 20070901
  5. SOL MEDROL(METHYLPREDNISOLONE, SUCCINATE SODIUM) FORMULATION UNKNOWN [Suspect]
     Dosage: 1000 MG, D, 300 MG, D, 125 MG, D
     Dates: start: 20070903, end: 20070905
  6. SOL MEDROL(METHYLPREDNISOLONE, SUCCINATE SODIUM) FORMULATION UNKNOWN [Suspect]
     Dosage: 1000 MG, D, 300 MG, D, 125 MG, D
     Dates: start: 20070910, end: 20070911
  7. SOL MEDROL(METHYLPREDNISOLONE, SUCCINATE SODIUM) FORMULATION UNKNOWN [Suspect]
     Dosage: 1000 MG, D, 300 MG, D, 125 MG, D
     Dates: start: 20070914, end: 20070914
  8. GASTER D ORODISPERSABLE CR TABLET [Concomitant]
  9. BAKTAR (SULFAMETHOXAZOLE, TRIMETHOPRIM) GRANULE [Concomitant]
  10. FUNGUARD (MICAFUNGIN SODIUM) INJECTION [Concomitant]

REACTIONS (6)
  - BLOOD BETA-D-GLUCAN INCREASED [None]
  - CONDITION AGGRAVATED [None]
  - INTERSTITIAL LUNG DISEASE [None]
  - PNEUMOCYSTIS JIROVECI PNEUMONIA [None]
  - RESPIRATORY FAILURE [None]
  - SYSTEMIC MYCOSIS [None]
